FAERS Safety Report 8595946-7 (Version None)
Quarter: 2012Q3

REPORT INFORMATION
  Report Type: 
  Country: None (occurrence: None)
  Receive Date: 20120815
  Receipt Date: 19931115
  Transmission Date: 20120928
  Serious: Yes (Hospitalization)
  Sender: FDA-Public Use
  Company Number: US-ROCHE-1100781

PATIENT
  Sex: Male

DRUGS (8)
  1. LIDOCAINE [Concomitant]
     Dosage: 3 MG/MIN
     Route: 041
  2. LOPRESSOR [Concomitant]
  3. ACTIVASE [Suspect]
     Indication: ACUTE MYOCARDIAL INFARCTION
     Dosage: OVER AN HOUR
     Route: 042
  4. XANAX [Concomitant]
  5. HEPARIN [Concomitant]
     Dosage: 1200 UNITS/HOUR
  6. NITROGLYCERIN [Concomitant]
  7. ACTIVASE [Suspect]
     Dosage: OVER AN HOUR
     Route: 042
  8. ACTIVASE [Suspect]
     Dosage: OVER AN HOUR
     Route: 042

REACTIONS (2)
  - BLOOD CREATINE PHOSPHOKINASE INCREASED [None]
  - VENTRICULAR EXTRASYSTOLES [None]
